FAERS Safety Report 24145280 (Version 2)
Quarter: 2024Q4

REPORT INFORMATION
  Report Type: Spontaneous
  Country: US (occurrence: US)
  Receive Date: 20240729
  Receipt Date: 20241017
  Transmission Date: 20250114
  Serious: Yes (Hospitalization, Other)
  Sender: SANOFI AVENTIS
  Company Number: US-SA-SAC20240520000640

PATIENT
  Age: 63 Year
  Sex: Male

DRUGS (1)
  1. DUPIXENT [Suspect]
     Active Substance: DUPILUMAB
     Indication: Nasal polyps
     Dosage: 300 MG, QOW
     Route: 058
     Dates: start: 202309, end: 202407

REACTIONS (6)
  - Angina pectoris [Unknown]
  - Bradycardia [Unknown]
  - Cardiac disorder [Unknown]
  - Dizziness [Unknown]
  - Dizziness exertional [Unknown]
  - Nerve compression [Unknown]

NARRATIVE: CASE EVENT DATE: 20240101
